FAERS Safety Report 25531048 (Version 5)
Quarter: 2025Q4

REPORT INFORMATION
  Report Type: Report from Study
  Country: US (occurrence: None)
  Receive Date: 20250708
  Receipt Date: 20251225
  Transmission Date: 20260117
  Serious: Yes (Other)
  Sender: UCB
  Company Number: US-UCBSA-2025041156

PATIENT
  Age: 8 Year

DRUGS (8)
  1. FENFLURAMINE [Suspect]
     Active Substance: FENFLURAMINE
     Indication: Lennox-Gastaut syndrome
     Dosage: 2.4 MILLIGRAM, 2X/DAY (BID)
     Route: 061
  2. FENFLURAMINE [Suspect]
     Active Substance: FENFLURAMINE
     Dosage: 4.8 MILLIGRAM, 2X/DAY (BID)
     Route: 061
  3. FENFLURAMINE [Suspect]
     Active Substance: FENFLURAMINE
     Dosage: 8.4 MILLIGRAM, 2X/DAY (BID)
     Route: 061
  4. FENFLURAMINE [Suspect]
     Active Substance: FENFLURAMINE
     Dosage: 2.2 MILLILITER, 2X/DAY (BID)
  5. FENFLURAMINE [Suspect]
     Active Substance: FENFLURAMINE
     Dosage: 3.8 MILLILITER, 2X/DAY (BID)
     Route: 061
  6. FENFLURAMINE [Suspect]
     Active Substance: FENFLURAMINE
     Dosage: 3.8 MILLILITER, 2X/DAY (BID)
  7. FENFLURAMINE [Suspect]
     Active Substance: FENFLURAMINE
     Dosage: 3.8 MILLILITER, 2X/DAY (BID)
  8. FENFLURAMINE [Suspect]
     Active Substance: FENFLURAMINE
     Dosage: 4.1 MILLILITER, 2X/DAY (BID)

REACTIONS (6)
  - Seizure [Recovering/Resolving]
  - Generalised tonic-clonic seizure [Not Recovered/Not Resolved]
  - Somnolence [Unknown]
  - Cyclic vomiting syndrome [Not Recovered/Not Resolved]
  - Migraine [Not Recovered/Not Resolved]
  - Extra dose administered [Unknown]
